FAERS Safety Report 11256123 (Version 2)
Quarter: 2015Q4

REPORT INFORMATION
  Report Type: Spontaneous
  Country: US (occurrence: US)
  Receive Date: 20150709
  Receipt Date: 20151103
  Transmission Date: 20160304
  Serious: Yes (Hospitalization, Other)
  Sender: FDA-Public Use
  Company Number: US-DSJP-DSU-2015-121180

PATIENT

DRUGS (7)
  1. BENICAR [Suspect]
     Active Substance: OLMESARTAN MEDOXOMIL
     Indication: HYPERTENSION
     Dosage: 20 MG, QD
     Route: 048
     Dates: start: 20040609, end: 20060207
  2. BENICAR [Suspect]
     Active Substance: OLMESARTAN MEDOXOMIL
     Dosage: 4 MG, QD
     Dates: start: 20111205, end: 20120624
  3. BENICAR HCT [Suspect]
     Active Substance: HYDROCHLOROTHIAZIDE\OLMESARTAN MEDOXOMIL
     Indication: HYPERTENSION
     Dosage: 40/12.5 MG, QD
     Route: 048
     Dates: start: 20060208, end: 201005
  4. BENICAR HCT [Suspect]
     Active Substance: HYDROCHLOROTHIAZIDE\OLMESARTAN MEDOXOMIL
     Dosage: 40/12.5 MG, QD
     Dates: start: 20120626, end: 20140716
  5. ASPIRIN                            /00002701/ [Concomitant]
     Active Substance: ASPIRIN
     Indication: PRODUCT USED FOR UNKNOWN INDICATION
     Dosage: 325 MG, QD
     Dates: start: 2010
  6. BENICAR HCT [Suspect]
     Active Substance: HYDROCHLOROTHIAZIDE\OLMESARTAN MEDOXOMIL
     Dosage: 40/12.5 MG, QD
     Dates: start: 201012, end: 20110502
  7. BENICAR [Suspect]
     Active Substance: OLMESARTAN MEDOXOMIL
     Dosage: 5 MG, QD
     Dates: start: 20110502, end: 20111205

REACTIONS (17)
  - Hiatus hernia [Unknown]
  - Dizziness [Unknown]
  - Nephrolithiasis [Unknown]
  - Malabsorption [Recovered/Resolved]
  - Constipation [Unknown]
  - Iron deficiency anaemia [Unknown]
  - Hepatic cyst [Unknown]
  - Vitamin B12 deficiency [Unknown]
  - Gastrooesophageal reflux disease [Unknown]
  - Gastric bypass [Unknown]
  - Oedema peripheral [Unknown]
  - Incorrect dose administered [Unknown]
  - Gastrointestinal haemorrhage [Unknown]
  - Gastroenteritis [Recovered/Resolved]
  - Syncope [Recovered/Resolved]
  - Hypotension [Unknown]
  - Diverticulum [Unknown]

NARRATIVE: CASE EVENT DATE: 2006
